FAERS Safety Report 8263535-X (Version None)
Quarter: 2012Q2

REPORT INFORMATION
  Report Type: 
  Country: None (occurrence: None)
  Receive Date: 20120405
  Receipt Date: 20120330
  Transmission Date: 20120825
  Serious: Yes (Hospitalization, Other)
  Sender: FDA-Public Use
  Company Number: JP-VERTEX PHARMACEUTICALS INC.-AE-2012-003747

PATIENT
  Age: 66 Year
  Sex: Female

DRUGS (9)
  1. PEG-INTRON [Concomitant]
     Indication: HEPATITIS C
     Route: 058
     Dates: start: 20120120
  2. FAMOTIDINE [Concomitant]
     Route: 048
  3. REBETOL [Concomitant]
     Route: 048
     Dates: start: 20120218
  4. SENNOSIDE [Concomitant]
     Route: 048
  5. LEVOFLOXACIN [Concomitant]
     Route: 047
  6. REBETOL [Concomitant]
     Indication: HEPATITIS C
     Route: 048
     Dates: start: 20120120, end: 20120203
  7. REBETOL [Concomitant]
     Route: 048
     Dates: start: 20120211, end: 20120217
  8. TELAVIC (TELAPREVIR) [Suspect]
     Indication: HEPATITIS C
     Route: 048
     Dates: start: 20120120
  9. REBETOL [Concomitant]
     Route: 048
     Dates: start: 20120204, end: 20120210

REACTIONS (3)
  - LOSS OF CONSCIOUSNESS [None]
  - MALAISE [None]
  - DECREASED APPETITE [None]
